FAERS Safety Report 10152791 (Version 4)
Quarter: 2014Q3

REPORT INFORMATION
  Report Type: Spontaneous
  Country: JP (occurrence: JP)
  Receive Date: 20140505
  Receipt Date: 20140728
  Transmission Date: 20150326
  Serious: Yes (Other)
  Sender: FDA-Public Use
  Company Number: JP-PFIZER INC-2014116981

PATIENT
  Age: 79 Year
  Sex: Female
  Weight: 42 kg

DRUGS (11)
  1. LASIX [Concomitant]
     Active Substance: FUROSEMIDE
     Route: 048
  2. NELBON [Concomitant]
     Active Substance: NITRAZEPAM
     Route: 048
  3. UFT [Concomitant]
     Active Substance: TEGAFUR\URACIL
     Route: 048
  4. TRAMCET [Concomitant]
     Active Substance: ACETAMINOPHEN\TRAMADOL
     Route: 048
  5. ZYVOX [Suspect]
     Active Substance: LINEZOLID
     Dosage: 1200 MG, 2X/DAY
     Route: 048
     Dates: start: 20140402, end: 20140403
  6. GASMOTIN [Concomitant]
     Active Substance: MOSAPRIDE CITRATE
     Route: 048
  7. RIVOTRIL [Concomitant]
     Active Substance: CLONAZEPAM
     Route: 048
  8. NEXIUM [Concomitant]
     Active Substance: ESOMEPRAZOLE MAGNESIUM
     Route: 048
  9. ROHYPNOL [Concomitant]
     Active Substance: FLUNITRAZEPAM
     Route: 048
  10. DAI-KENCHU-TO [Concomitant]
     Active Substance: MALTOSE
     Route: 048
  11. PROMAC D [Concomitant]
     Active Substance: NITROFURANTOIN
     Route: 048

REACTIONS (2)
  - Altered state of consciousness [Recovered/Resolved]
  - Convulsion [Recovered/Resolved]

NARRATIVE: CASE EVENT DATE: 20140404
